FAERS Safety Report 26149574 (Version 1)
Quarter: 2025Q4

REPORT INFORMATION
  Report Type: Report from Study
  Country: EG (occurrence: EG)
  Receive Date: 20251212
  Receipt Date: 20251212
  Transmission Date: 20260117
  Serious: Yes (Hospitalization, Other)
  Sender: ROCHE
  Company Number: EG-002147023-NVSC2025EG177457

PATIENT
  Age: 17 Year
  Sex: Male
  Weight: 90 kg

DRUGS (2)
  1. XOLAIR [Suspect]
     Active Substance: OMALIZUMAB
     Indication: Asthma
     Dosage: 150 MG, OTHER, THREE INJECTIONS EVERY MONTH
     Route: 058
     Dates: start: 202411, end: 202504
  2. XOLAIR [Suspect]
     Active Substance: OMALIZUMAB
     Dosage: 150 MG, OTHER, TWO INJECTIONS EVERY MONTH
     Route: 058

REACTIONS (9)
  - Heart rate increased [Recovering/Resolving]
  - Asthma [Recovering/Resolving]
  - Urticaria [Not Recovered/Not Resolved]
  - Fatigue [Unknown]
  - Skin fragility [Not Recovered/Not Resolved]
  - Decreased immune responsiveness [Not Recovered/Not Resolved]
  - Off label use [Unknown]
  - Product dose omission issue [Unknown]
  - Skin fissures [Unknown]

NARRATIVE: CASE EVENT DATE: 20251114
